FAERS Safety Report 11875819 (Version 1)
Quarter: 2015Q4

REPORT INFORMATION
  Report Type: Spontaneous
  Country: US (occurrence: None)
  Receive Date: 20151228
  Receipt Date: 20151228
  Transmission Date: 20160305
  Serious: No
  Sender: FDA-Public Use
  Company Number: None

PATIENT
  Age: 53 Year
  Sex: Male

DRUGS (1)
  1. HUMIRA [Suspect]
     Active Substance: ADALIMUMAB
     Indication: CROHN^S DISEASE
     Dosage: 40 MG/0.8ML, EVERY 14 DAYS?
     Route: 058
     Dates: start: 20150527

REACTIONS (3)
  - Injection site swelling [None]
  - Injection site pain [None]
  - Injection site pruritus [None]

NARRATIVE: CASE EVENT DATE: 20151125
